FAERS Safety Report 7865048-3 (Version None)
Quarter: 2011Q4

REPORT INFORMATION
  Report Type: 
  Country: None (occurrence: None)
  Receive Date: 20111028
  Receipt Date: 20101006
  Transmission Date: 20120403
  Serious: No
  Sender: FDA-Public Use
  Company Number: US-GLAXOSMITHKLINE-A0885233A

PATIENT
  Age: 68 Year
  Sex: Male

DRUGS (4)
  1. SPIRIVA [Concomitant]
  2. ADVAIR DISKUS 100/50 [Suspect]
     Indication: CHRONIC OBSTRUCTIVE PULMONARY DISEASE
     Dosage: 1PUFF TWICE PER DAY
     Route: 055
     Dates: start: 20040101
  3. XOPENEX [Concomitant]
  4. ALBUTEROL [Concomitant]

REACTIONS (4)
  - CONDITION AGGRAVATED [None]
  - TREMOR [None]
  - TOOTH FRACTURE [None]
  - TOOTH LOSS [None]
